FAERS Safety Report 9395114 (Version 1)
Quarter: 2013Q3

REPORT INFORMATION
  Report Type: Report from Study
  Country: AR (occurrence: AR)
  Receive Date: 20130711
  Receipt Date: 20130711
  Transmission Date: 20140515
  Serious: Yes (Other)
  Sender: FDA-Public Use
  Company Number: PHHY2013AR073688

PATIENT
  Sex: Male

DRUGS (1)
  1. DIOVAN [Suspect]
     Indication: HYPERTENSION
     Dosage: 1 DF(160MG), DAILY
     Route: 048

REACTIONS (4)
  - Dementia Alzheimer^s type [Recovering/Resolving]
  - Fall [Unknown]
  - Hip fracture [Unknown]
  - Ligament sprain [Unknown]
